FAERS Safety Report 5222733-X (Version None)
Quarter: 2007Q1

REPORT INFORMATION
  Report Type: 
  Country: None (occurrence: None)
  Receive Date: 20070124
  Receipt Date: 20070115
  Transmission Date: 20070707
  Serious: Yes (Hospitalization, Other)
  Sender: FDA-Public Use
  Company Number: 2007-00020

PATIENT
  Age: 50 Year
  Sex: Male

DRUGS (11)
  1. VELCADE [Suspect]
     Indication: MULTIPLE MYELOMA
     Dosage: 1.00 MG/M2, UNK, UNKNOWN; SEE IMAGE
     Dates: start: 20061001, end: 20061201
  2. VELCADE [Suspect]
     Indication: MULTIPLE MYELOMA
     Dosage: 1.00 MG/M2, UNK, UNKNOWN; SEE IMAGE
     Dates: start: 20061201, end: 20070101
  3. VELCADE [Suspect]
     Indication: MULTIPLE MYELOMA
     Dosage: 1.00 MG/M2, UNK, UNKNOWN; SEE IMAGE
     Dates: start: 20060901
  4. ADRIAMYCIN PFS [Concomitant]
  5. METICORTEN [Concomitant]
  6. CAPOTEN [Concomitant]
  7. RANITIDINE [Concomitant]
  8. LUFTAL (DIMETICONE) [Concomitant]
  9. THALIDOMIDE [Concomitant]
  10. LEXOTAN (BROMAZEPAM) [Concomitant]
  11. OLDACIL (CLOXAZOLAM) [Concomitant]

REACTIONS (8)
  - ANAEMIA [None]
  - CONDITION AGGRAVATED [None]
  - CONSTIPATION [None]
  - DRUG INEFFECTIVE [None]
  - HYPOAESTHESIA [None]
  - ILEUS PARALYTIC [None]
  - NEUROGENIC BLADDER [None]
  - NEUROPATHY PERIPHERAL [None]
